FAERS Safety Report 11113357 (Version 1)
Quarter: 2015Q2

REPORT INFORMATION
  Report Type: Spontaneous
  Country: US (occurrence: US)
  Receive Date: 20150514
  Receipt Date: 20150514
  Transmission Date: 20150821
  Serious: Yes (Death, Hospitalization)
  Sender: FDA-Public Use
  Company Number: US-ASTRAZENECA-2013SE64978

PATIENT
  Age: 26733 Day
  Sex: Male
  Weight: 91.1 kg

DRUGS (12)
  1. BYETTA [Suspect]
     Active Substance: EXENATIDE
     Indication: TYPE 2 DIABETES MELLITUS
     Dosage: UNK
     Route: 065
     Dates: start: 201011, end: 201105
  2. BYETTA [Suspect]
     Active Substance: EXENATIDE
     Indication: TYPE 2 DIABETES MELLITUS
     Route: 065
     Dates: start: 20101124
  3. JANUMET [Suspect]
     Active Substance: METFORMIN HYDROCHLORIDE\SITAGLIPTIN PHOSPHATE
     Indication: TYPE 2 DIABETES MELLITUS
     Dosage: 50-500 MG TWO TIMES A DAY
     Route: 065
  4. PANCREATIC ENZYMES [Concomitant]
     Active Substance: UNSPECIFIED INGREDIENT
  5. JANUMET [Suspect]
     Active Substance: METFORMIN HYDROCHLORIDE\SITAGLIPTIN PHOSPHATE
     Indication: TYPE 2 DIABETES MELLITUS
     Dosage: UNK
     Route: 065
     Dates: start: 200807, end: 201108
  6. JANUVIA [Suspect]
     Active Substance: SITAGLIPTIN PHOSPHATE
     Indication: TYPE 2 DIABETES MELLITUS
     Route: 048
     Dates: start: 20070611
  7. LANTUS [Concomitant]
     Active Substance: INSULIN GLARGINE
     Route: 058
  8. ENOXAPARIN [Concomitant]
     Active Substance: ENOXAPARIN
  9. JANUVIA [Suspect]
     Active Substance: SITAGLIPTIN PHOSPHATE
     Indication: TYPE 2 DIABETES MELLITUS
     Dosage: UNK
     Route: 065
     Dates: start: 200706, end: 200807
  10. HUMALOG [Concomitant]
     Active Substance: INSULIN LISPRO
  11. TESTOSTERONE. [Concomitant]
     Active Substance: TESTOSTERONE
  12. CYMBALTA [Concomitant]
     Active Substance: DULOXETINE HYDROCHLORIDE

REACTIONS (2)
  - Jaundice cholestatic [Unknown]
  - Adenocarcinoma pancreas [Fatal]

NARRATIVE: CASE EVENT DATE: 20110815
